FAERS Safety Report 7732088-4 (Version None)
Quarter: 2011Q3

REPORT INFORMATION
  Report Type: 
  Country: None (occurrence: None)
  Receive Date: 20110906
  Receipt Date: 20110801
  Transmission Date: 20111222
  Serious: No
  Sender: FDA-Public Use
  Company Number: US-AMGEN-USASP2011038867

PATIENT
  Age: 57 Year
  Sex: Female

DRUGS (11)
  1. LEVOXYL [Concomitant]
     Dosage: UNK MG, UNK
  2. COSAMIN DS [Concomitant]
     Dosage: UNK
  3. PROLIA [Suspect]
     Indication: OSTEOPOROSIS POSTMENOPAUSAL
     Dosage: 60 MG, Q6MO
     Dates: start: 20110301
  4. ADVIL LIQUI-GELS [Concomitant]
     Dosage: UNK
  5. CAPTOPRIL [Concomitant]
     Dosage: UNK MG, UNK
  6. NOVOLOG [Concomitant]
     Dosage: UNK
  7. VIACTIV                            /00751501/ [Concomitant]
     Dosage: 1 UNK, UNK
  8. REGLAN [Concomitant]
  9. VITAMIN C                          /00008001/ [Concomitant]
     Dosage: UNK
  10. LOTEMAX [Concomitant]
     Dosage: 1 MG, QD
  11. TYLENOL (CAPLET) [Concomitant]
     Dosage: UNK

REACTIONS (1)
  - PARAESTHESIA [None]
